FAERS Safety Report 8560258-4 (Version None)
Quarter: 2012Q3

REPORT INFORMATION
  Report Type: 
  Country: None (occurrence: None)
  Receive Date: 20120802
  Receipt Date: 20120726
  Transmission Date: 20120928
  Serious: Yes (Hospitalization, Other)
  Sender: FDA-Public Use
  Company Number: US-ABBOTT-12P-163-0961367-00

PATIENT
  Age: 44 Year
  Sex: Female

DRUGS (1)
  1. HUMIRA [Suspect]
     Indication: CROHN'S DISEASE
     Dosage: LOADING DOSE ONLY
     Dates: start: 20120301

REACTIONS (12)
  - OESOPHAGEAL ULCER [None]
  - ABDOMINAL PAIN [None]
  - POLYMENORRHOEA [None]
  - VAGINAL HAEMORRHAGE [None]
  - DIARRHOEA [None]
  - FULL BLOOD COUNT ABNORMAL [None]
  - CROHN'S DISEASE [None]
  - HAEMATOCHEZIA [None]
  - LARGE INTESTINAL ULCER [None]
  - GASTROINTESTINAL DISORDER [None]
  - EROSIVE OESOPHAGITIS [None]
  - MALNUTRITION [None]
